FAERS Safety Report 24152234 (Version 2)
Quarter: 2024Q3

REPORT INFORMATION
  Report Type: Spontaneous
  Country: US (occurrence: US)
  Receive Date: 20240730
  Receipt Date: 20240828
  Transmission Date: 20241016
  Serious: Yes (Hospitalization, Other)
  Sender: PFIZER
  Company Number: US-PFIZER INC-202400224185

PATIENT
  Age: 82 Year
  Sex: Female

DRUGS (2)
  1. IBRANCE [Suspect]
     Active Substance: PALBOCICLIB
     Dosage: 1 TABLET DAILY BY MOUTH FOR 3 WEEKS ON, THEN 7 DAYS OFF
     Route: 048
     Dates: start: 20240501
  2. IBRANCE [Suspect]
     Active Substance: PALBOCICLIB
     Dosage: 1 TABLET BY MOUTH DAILY FOR 3 WEEKS ON, THEN 7 DAYS OFF
     Route: 048

REACTIONS (4)
  - COVID-19 [Recovered/Resolved]
  - Hip surgery [Unknown]
  - Parkinson^s disease [Unknown]
  - Pneumonia [Recovered/Resolved]

NARRATIVE: CASE EVENT DATE: 20240501
